FAERS Safety Report 18196596 (Version 2)
Quarter: 2023Q1

REPORT INFORMATION
  Report Type: Report from Study
  Country: KR (occurrence: KR)
  Receive Date: 20200826
  Receipt Date: 20230304
  Transmission Date: 20230418
  Serious: Yes (Other)
  Sender: FDA-Public Use
  Company Number: KR-ABBVIE-20K-090-3538766-00

PATIENT
  Sex: Female

DRUGS (1)
  1. HUMIRA [Suspect]
     Active Substance: ADALIMUMAB
     Indication: Ankylosing spondylitis
     Route: 058

REACTIONS (2)
  - Road traffic accident [Recovered/Resolved]
  - Suicidal ideation [Recovered/Resolved]
